FAERS Safety Report 13307248 (Version 2)
Quarter: 2017Q2

REPORT INFORMATION
  Report Type: Spontaneous
  Country: US (occurrence: US)
  Receive Date: 20170308
  Receipt Date: 20170508
  Transmission Date: 20170830
  Serious: Yes (Hospitalization)
  Sender: FDA-Public Use
  Company Number: US-PFIZER INC-2017099013

PATIENT
  Age: 10 Year
  Sex: Female
  Weight: 68 kg

DRUGS (1)
  1. NEURONTIN [Suspect]
     Active Substance: GABAPENTIN
     Indication: NEURALGIA
     Dosage: UNK

REACTIONS (6)
  - Aggression [Not Recovered/Not Resolved]
  - Depression [Unknown]
  - Affective disorder [Unknown]
  - Thinking abnormal [Unknown]
  - Libido increased [Unknown]
  - Product use in unapproved indication [Unknown]

NARRATIVE: CASE EVENT DATE: 2002
